FAERS Safety Report 9234950 (Version 1)
Quarter: 2013Q2

REPORT INFORMATION
  Report Type: Spontaneous
  Country: FR (occurrence: FR)
  Receive Date: 20130416
  Receipt Date: 20130416
  Transmission Date: 20140414
  Serious: Yes (Death)
  Sender: FDA-Public Use
  Company Number: FR-ABBOTT-13X-056-1076424-00

PATIENT
  Age: 20 Year
  Sex: Male

DRUGS (10)
  1. CLARITHROMYCIN [Suspect]
     Indication: MYCOBACTERIUM AVIUM COMPLEX INFECTION
     Dates: end: 2007
  2. MOXIFLOXACIN [Suspect]
     Indication: MYCOBACTERIUM AVIUM COMPLEX INFECTION
  3. MOXIFLOXACIN [Suspect]
  4. AMIKACIN [Suspect]
     Route: 042
     Dates: start: 200501
  5. AMIKACIN [Suspect]
     Route: 042
     Dates: start: 200705
  6. ETHAMBUTOL [Suspect]
     Dates: start: 200501
  7. ETHAMBUTOL [Suspect]
     Dates: start: 200606
  8. AZITHROMYCIN [Suspect]
     Indication: MYCOBACTERIUM AVIUM COMPLEX INFECTION
     Dates: start: 200501
  9. RIFABUTIN [Suspect]
     Indication: MYCOBACTERIUM AVIUM COMPLEX INFECTION
  10. RIFABUTIN [Suspect]

REACTIONS (2)
  - Multiple-drug resistance [Fatal]
  - Ototoxicity [Unknown]
